FAERS Safety Report 8459769-1 (Version None)
Quarter: 2012Q2

REPORT INFORMATION
  Report Type: 
  Country: None (occurrence: None)
  Receive Date: 20120622
  Receipt Date: 20120619
  Transmission Date: 20120825
  Serious: Yes (Life-Threatening, Hospitalization, Disabling)
  Sender: FDA-Public Use
  Company Number: GB-MERCK-0901GBR00008

PATIENT
  Age: 70 Year
  Sex: Male

DRUGS (23)
  1. MAGNESIUM HYDROXIDE [Concomitant]
     Route: 065
  2. ERYTHROMYCIN [Concomitant]
     Indication: LOWER RESPIRATORY TRACT INFECTION
     Route: 048
     Dates: start: 20081204, end: 20081208
  3. DICLOFENAC [Concomitant]
     Route: 065
  4. FUSIDATE SODIUM [Concomitant]
     Indication: MUSCLE ABSCESS
     Route: 048
     Dates: start: 20081113, end: 20081216
  5. ZOCOR [Suspect]
     Indication: HYPERCHOLESTEROLAEMIA
     Route: 048
     Dates: start: 20050101, end: 20081209
  6. FUSIDATE SODIUM [Concomitant]
     Indication: INTERVERTEBRAL DISCITIS
     Route: 048
     Dates: start: 20081113, end: 20081216
  7. GABAPENTIN [Concomitant]
     Route: 065
  8. GLUCOSAMINE [Concomitant]
     Route: 065
  9. LACTULOSE [Concomitant]
     Route: 065
  10. ACETAMINOPHEN [Concomitant]
     Route: 065
  11. AMITRIPTYLINE HYDROCHLORIDE [Concomitant]
     Route: 065
  12. ASPIRIN [Concomitant]
     Route: 065
  13. POLYETHYLENE GLYCOL 3350 AND POTASSIUM CHLORIDE AND SODIUM BICARBONATE [Concomitant]
     Route: 065
  14. ZOCOR [Suspect]
     Indication: MYOCARDIAL ISCHAEMIA
     Route: 048
     Dates: start: 20050101, end: 20081209
  15. SENNA [Concomitant]
     Route: 065
  16. LATANOPROST [Concomitant]
     Route: 065
  17. COSOPT [Concomitant]
     Route: 047
  18. FENTANYL [Concomitant]
     Route: 065
  19. FLOXACILLIN [Concomitant]
     Route: 065
  20. CLARITHROMYCIN [Concomitant]
     Indication: LOWER RESPIRATORY TRACT INFECTION
     Route: 048
     Dates: start: 20081208, end: 20081209
  21. LISINOPRIL [Concomitant]
     Route: 048
  22. TIOTROPIUM BROMIDE [Concomitant]
     Route: 065
  23. TRAMADOL HYDROCHLORIDE [Concomitant]
     Route: 065

REACTIONS (6)
  - RHABDOMYOLYSIS [None]
  - MUSCULAR WEAKNESS [None]
  - MUSCLE ATROPHY [None]
  - RENAL FAILURE ACUTE [None]
  - RESPIRATORY FAILURE [None]
  - RESPIRATORY DISORDER [None]
